FAERS Safety Report 13881040 (Version 1)
Quarter: 2017Q3

REPORT INFORMATION
  Report Type: Report from Study
  Country: DE (occurrence: DE)
  Receive Date: 20170818
  Receipt Date: 20170818
  Transmission Date: 20171127
  Serious: Yes (Other)
  Sender: FDA-Public Use
  Company Number: DE-ROCHE-1978892

PATIENT
  Sex: Female
  Weight: 62 kg

DRUGS (5)
  1. RANIBIZUMAB. [Suspect]
     Active Substance: RANIBIZUMAB
     Dosage: 0.5 MG, 1 X (FORM: VIAL)
     Route: 031
     Dates: start: 20170403
  2. RANIBIZUMAB. [Suspect]
     Active Substance: RANIBIZUMAB
     Dosage: 0.5 MG, 1 X (FORM: VIAL)
     Route: 031
     Dates: start: 20170612
  3. RANIBIZUMAB. [Suspect]
     Active Substance: RANIBIZUMAB
     Indication: NEOVASCULAR AGE-RELATED MACULAR DEGENERATION
     Dosage: 0.5 MG, 1 X (FORM: VIAL)
     Route: 031
     Dates: start: 20170227
  4. RANIBIZUMAB. [Suspect]
     Active Substance: RANIBIZUMAB
     Dosage: 0.5 MG, 1 X (FORM: VIAL)
     Route: 031
     Dates: start: 20170508
  5. RANIBIZUMAB. [Suspect]
     Active Substance: RANIBIZUMAB
     Dosage: 0.5 MG, 1 X (FORM: VIAL)
     Route: 031
     Dates: start: 20170710, end: 20170710

REACTIONS (1)
  - Retinal degeneration [Unknown]

NARRATIVE: CASE EVENT DATE: 20170710
